FAERS Safety Report 4294835-6 (Version None)
Quarter: 2004Q1

REPORT INFORMATION
  Report Type: 
  Country: None (occurrence: None)
  Receive Date: 20040216
  Receipt Date: 20030117
  Transmission Date: 20041129
  Serious: No
  Sender: FDA-Public Use
  Company Number: US-GLAXOSMITHKLINE-A0392958A

PATIENT
  Age: 51 Year
  Sex: Female

DRUGS (2)
  1. LAMICTAL [Suspect]
     Indication: EPILEPSY
     Dosage: 175MG PER DAY
     Route: 048
  2. PHENOBARB [Concomitant]
     Dosage: 30MG TWICE PER DAY

REACTIONS (2)
  - SOMNOLENCE [None]
  - STUPOR [None]
